FAERS Safety Report 5034927-7 (Version None)
Quarter: 2006Q2

REPORT INFORMATION
  Report Type: 
  Country: None (occurrence: None)
  Receive Date: 20060519
  Receipt Date: 20060214
  Transmission Date: 20061013
  Serious: No
  Sender: FDA-Public Use
  Company Number: 06-MIT00001

PATIENT
  Age: 49 Year
  Sex: Female
  Weight: 97 kg

DRUGS (8)
  1. MITOMYCIN [Suspect]
     Indication: ANAL CANCER
     Dates: start: 20050601
  2. CLOZAPINE [Suspect]
     Indication: SCHIZOPHRENIA
     Dosage: 600 MG (300 MG,BID), ORAL
     Route: 048
     Dates: end: 20050705
  3. FLUOROURACIL [Suspect]
     Indication: ANAL CANCER
     Dates: start: 20050601
  4. HEPARIN [Concomitant]
  5. TRIHEXYPHENIDYL HYDROCHLORIDE (TRIHEXYPHENIDYL HYDROCHLORIDE) (TRIHEXY [Concomitant]
  6. PIOGLITAZONE HYDROCHLORIDE (PIOGLITAZONE HYDROCHLORIDE) (PIOGLITAZONE [Concomitant]
  7. GLYBURIDE [Concomitant]
  8. LEVOTHYROXINE SODIUM (LEVOTHYROXINE SODIUM) (LEVOTHYROXINE SODIUM) [Concomitant]

REACTIONS (2)
  - LEUKOPENIA [None]
  - NEUTROPENIA [None]
